FAERS Safety Report 7330258-0 (Version None)
Quarter: 2011Q1

REPORT INFORMATION
  Report Type: 
  Country: None (occurrence: None)
  Receive Date: 20110303
  Receipt Date: 20110228
  Transmission Date: 20110831
  Serious: Yes (Other)
  Sender: FDA-Public Use
  Company Number: US-BRISTOL-MYERS SQUIBB COMPANY-15575459

PATIENT
  Age: 45 Year
  Sex: Female
  Weight: 73 kg

DRUGS (8)
  1. PERCOCET [Concomitant]
  2. MULTIVITAMIN [Concomitant]
  3. CALCITRATE [Concomitant]
  4. COUMADIN [Suspect]
  5. METHOTREXATE [Concomitant]
  6. FOLIC ACID [Concomitant]
  7. ACIDOPHILUS [Concomitant]
  8. ORENCIA [Suspect]
     Dates: start: 20110201

REACTIONS (1)
  - INTERNATIONAL NORMALISED RATIO DECREASED [None]
